FAERS Safety Report 7122981-8 (Version None)
Quarter: 2010Q4

REPORT INFORMATION
  Report Type: 
  Country: None (occurrence: None)
  Receive Date: 20101124
  Receipt Date: 20101101
  Transmission Date: 20110411
  Serious: Yes (Hospitalization, Other)
  Sender: FDA-Public Use
  Company Number: US-AMGEN-USASP2010003041

PATIENT

DRUGS (11)
  1. PROCRIT [Suspect]
     Indication: RENAL FAILURE CHRONIC
     Dosage: 80000 IU, Q3WK
     Route: 058
     Dates: start: 20070101
  2. CREON [Concomitant]
     Indication: PANCREATIC ENZYMES
     Dosage: 60000 IU, Q8H
     Route: 048
     Dates: start: 20000101
  3. PREMARIN [Concomitant]
     Dosage: 6.25 MG, QD
     Route: 048
     Dates: start: 20000101
  4. FUROSEMIDE [Concomitant]
     Dosage: 40 MG, QD
     Route: 048
     Dates: start: 20000101
  5. LISINOPRIL [Concomitant]
     Dosage: 5 MG, QD
     Route: 048
     Dates: start: 20000101
  6. MAGNESIUM CHLORIDE [Concomitant]
     Dosage: 64 MG, Q8H
     Route: 048
     Dates: start: 20000101
  7. SOMA [Concomitant]
     Dosage: 50 MG, Q6H
     Route: 048
     Dates: start: 20000101
  8. CLONAZEPAM [Concomitant]
     Indication: SLEEP DISORDER
     Dosage: 30 MG, QD
     Route: 048
     Dates: start: 20000101
  9. LORAZEPAM [Concomitant]
     Indication: MUSCLE DISORDER
     Dosage: 1 MG, Q6H
     Route: 048
     Dates: start: 20000101
  10. HECTOROL [Concomitant]
     Dosage: 2.5 A?G, 2 TIMES/WK
     Route: 048
     Dates: start: 20000101
  11. PROMETHAZINE [Concomitant]
     Indication: NAUSEA
     Dosage: 12.5 MG, PRN
     Route: 048
     Dates: start: 20000101

REACTIONS (6)
  - ABDOMINAL PAIN UPPER [None]
  - ABNORMAL LOSS OF WEIGHT [None]
  - BLOOD COUNT ABNORMAL [None]
  - DIZZINESS [None]
  - HAEMATOCHEZIA [None]
  - MALAISE [None]
